FAERS Safety Report 7490949-8 (Version None)
Quarter: 2011Q2

REPORT INFORMATION
  Report Type: 
  Country: None (occurrence: None)
  Receive Date: 20110519
  Receipt Date: 20110504
  Transmission Date: 20111010
  Serious: No
  Sender: FDA-Public Use
  Company Number: US-B.I. PHARMACEUTICALS,INC./RIDGEFIELD-2011-BP-08212BP

PATIENT
  Sex: Female

DRUGS (8)
  1. ZESTORETIC [Concomitant]
  2. TOPROL-XL [Concomitant]
  3. NEXIUM [Concomitant]
  4. PRADAXA [Suspect]
     Indication: ATRIAL FIBRILLATION
     Dosage: 300 MG
     Route: 048
     Dates: start: 20101212
  5. EVISTA [Concomitant]
  6. ENABLEX [Concomitant]
  7. LIPITOR [Concomitant]
  8. ADALAT [Concomitant]

REACTIONS (2)
  - PAIN IN EXTREMITY [None]
  - MYALGIA [None]
